FAERS Safety Report 20237484 (Version 1)
Quarter: 2021Q4

REPORT INFORMATION
  Report Type: Spontaneous
  Country: US (occurrence: None)
  Receive Date: 20211227
  Receipt Date: 20211227
  Transmission Date: 20220303
  Serious: Yes (Death)
  Sender: FDA-Public Use
  Company Number: None

PATIENT
  Age: 78 Year
  Sex: Male

DRUGS (14)
  1. INBRIJA [Suspect]
     Active Substance: LEVODOPA
     Indication: Parkinson^s disease
     Dosage: FREQUENCY : TWICE A DAY;?
     Route: 055
     Dates: start: 20210105, end: 20211224
  2. CARBIDOPA\LEVODOPA [Concomitant]
     Active Substance: CARBIDOPA\LEVODOPA
  3. RIVASTIGMINE [Concomitant]
     Active Substance: RIVASTIGMINE
  4. alfulzosin sr [Concomitant]
  5. ASPIRIN [Concomitant]
     Active Substance: ASPIRIN
  6. BUSPIRONE [Concomitant]
     Active Substance: BUSPIRONE HYDROCHLORIDE
  7. CLONAZEPAM [Concomitant]
     Active Substance: CLONAZEPAM
  8. FAMOTIDINE [Concomitant]
     Active Substance: FAMOTIDINE
  9. LORATADINE [Concomitant]
     Active Substance: LORATADINE
  10. MELATONIN [Concomitant]
     Active Substance: MELATONIN
  11. PANTOPRAZOLE [Concomitant]
     Active Substance: PANTOPRAZOLE
  12. TRAZODONE [Concomitant]
     Active Substance: TRAZODONE HYDROCHLORIDE
  13. VITAMIN B12 [Concomitant]
     Active Substance: CYANOCOBALAMIN
  14. VITAMIN B-COMPLEX [Concomitant]
     Active Substance: DEXPANTHENOL\NIACINAMIDE\PYRIDOXINE HYDROCHLORIDE\RIBOFLAVIN 5^-PHOSPHATE SODIUM\THIAMINE HYDROCHLOR

REACTIONS (1)
  - Death [None]

NARRATIVE: CASE EVENT DATE: 20211224
